FAERS Safety Report 9984830 (Version 1)
Quarter: 2014Q1

REPORT INFORMATION
  Report Type: Report from Study
  Country: US (occurrence: US)
  Receive Date: 20140307
  Receipt Date: 20140307
  Transmission Date: 20141002
  Serious: No
  Sender: FDA-Public Use
  Company Number: US-ABBVIE-14P-163-1186008-00

PATIENT
  Sex: Male

DRUGS (12)
  1. HUMIRA [Suspect]
     Indication: COLITIS ULCERATIVE
     Dates: start: 20130421
  2. ASACOL HD [Concomitant]
     Indication: COLITIS
  3. INDERAL [Concomitant]
     Indication: PALPITATIONS
  4. SYMBICORT [Concomitant]
     Indication: COUGH
  5. FOLIC ACID [Concomitant]
     Indication: VITAMIN SUPPLEMENTATION
  6. FEOSOL [Concomitant]
     Indication: HAEMOGLOBIN DECREASED
  7. ALIGN [Concomitant]
     Indication: PROPHYLAXIS
  8. ZYRTEC [Concomitant]
     Indication: HYPERSENSITIVITY
     Dosage: EXCEPT FOR IN WINTER, ALLERGIES NOT AFFECTED IN WINTER
  9. CENTRUM SILVER [Concomitant]
     Indication: PRODUCT USED FOR UNKNOWN INDICATION
  10. VITAMIN C [Concomitant]
     Indication: VITAMIN SUPPLEMENTATION
  11. VITAMIN B6 [Concomitant]
     Indication: VITAMIN SUPPLEMENTATION
  12. VITAMIN B-12 [Concomitant]
     Indication: VITAMIN SUPPLEMENTATION

REACTIONS (7)
  - Vitamin D decreased [Recovering/Resolving]
  - Injection site hypersensitivity [Recovering/Resolving]
  - Injection site swelling [Recovering/Resolving]
  - Injection site pruritus [Recovering/Resolving]
  - Injection site erythema [Recovering/Resolving]
  - Nasopharyngitis [Not Recovered/Not Resolved]
  - Pyrexia [Recovered/Resolved]
